FAERS Safety Report 11463659 (Version 1)
Quarter: 2015Q3

REPORT INFORMATION
  Report Type: Spontaneous
  Country: US (occurrence: US)
  Receive Date: 20150831
  Receipt Date: 20150831
  Transmission Date: 20151125
  Serious: No
  Sender: FDA-Public Use
  Company Number: US-ELI_LILLY_AND_COMPANY-US201104001966

PATIENT
  Age: 47 Year
  Sex: Female
  Weight: 68 kg

DRUGS (6)
  1. INDERAL [Concomitant]
     Active Substance: PROPRANOLOL HYDROCHLORIDE
     Dosage: UNK
  2. BENICAR [Concomitant]
     Active Substance: OLMESARTAN MEDOXOMIL
     Dosage: UNK
  3. LYRICA [Concomitant]
     Active Substance: PREGABALIN
     Indication: NEUROPATHY PERIPHERAL
     Dosage: 50 MG, BID
     Route: 048
     Dates: start: 200707
  4. LYRICA [Concomitant]
     Active Substance: PREGABALIN
     Dosage: 300 MG, BID
  5. LYRICA [Concomitant]
     Active Substance: PREGABALIN
     Dosage: UNK, PRN
  6. CYMBALTA [Suspect]
     Active Substance: DULOXETINE HYDROCHLORIDE
     Dosage: UNK

REACTIONS (3)
  - Weight increased [Unknown]
  - Increased appetite [Unknown]
  - Neuralgia [Unknown]
